FAERS Safety Report 8294103-1 (Version None)
Quarter: 2012Q2

REPORT INFORMATION
  Report Type: 
  Country: None (occurrence: None)
  Receive Date: 20120418
  Receipt Date: 20120403
  Transmission Date: 20120825
  Serious: Yes (Other)
  Sender: FDA-Public Use
  Company Number: PHFR2011GB007091

PATIENT
  Sex: Female
  Weight: 76 kg

DRUGS (5)
  1. ESTRADIOL [Concomitant]
     Dosage: UNK UKN, UNK
     Route: 067
     Dates: start: 20110705
  2. ACETAMINOPHEN AND CODEINE PHOSPHATE [Concomitant]
     Indication: ANALGESIC THERAPY
     Dosage: 2 DF, QID
     Route: 048
     Dates: start: 20031014
  3. TEMAZEPAM [Concomitant]
     Indication: ANXIETY
     Dosage: UNK UKN, UNK
     Route: 048
     Dates: start: 19960903
  4. ATENOLOL [Concomitant]
     Indication: PALPITATIONS
     Dosage: 25 MG, UNK
     Route: 048
     Dates: start: 20031014
  5. NEORAL [Suspect]
     Indication: BEHCET'S SYNDROME
     Dosage: 50 MG, BID
     Route: 048
     Dates: start: 20110825, end: 20111229

REACTIONS (3)
  - OROPHARYNGEAL PAIN [None]
  - INFECTION [None]
  - GLAUCOMA [None]
